FAERS Safety Report 6613640-6 (Version None)
Quarter: 2010Q1

REPORT INFORMATION
  Report Type: 
  Country: None (occurrence: None)
  Receive Date: 20100304
  Receipt Date: 20100217
  Transmission Date: 20100710
  Serious: Yes (Hospitalization)
  Sender: FDA-Public Use
  Company Number: US-ROCHE-684654

PATIENT
  Age: 53 Year
  Sex: Female
  Weight: 62.9 kg

DRUGS (7)
  1. BEVACIZUMAB [Suspect]
     Dosage: DOSE 651 MG
     Route: 042
     Dates: start: 20080201
  2. BEVACIZUMAB [Suspect]
     Dosage: DOSE 651 MG
     Route: 042
     Dates: start: 20100114
  3. EVEROLIMUS [Suspect]
     Route: 048
     Dates: start: 20080201
  4. EVEROLIMUS [Suspect]
     Dosage: ON M-W-F (MONDAY, WEDNESDAY, FRIDAY)
     Route: 048
     Dates: start: 20100114
  5. PANITUMUMAB [Suspect]
     Dosage: DOSE 312 MG
     Route: 042
     Dates: start: 20080201
  6. PANITUMUMAB [Suspect]
     Dosage: DOSE 312 MG
     Route: 042
     Dates: start: 20100114
  7. LISINOPRIL [Suspect]
     Indication: DRUG USE FOR UNKNOWN INDICATION
     Dosage: THERAPY DURATION: APPROXIMATELY 1 YEAR.
     Route: 065

REACTIONS (10)
  - ANGIOEDEMA [None]
  - CHILLS [None]
  - DRUG HYPERSENSITIVITY [None]
  - DYSPNOEA [None]
  - HYPOMAGNESAEMIA [None]
  - NEUTROPENIA [None]
  - PYREXIA [None]
  - RASH [None]
  - STOMATITIS [None]
  - THROMBOCYTOPENIA [None]
